FAERS Safety Report 9918240 (Version 1)
Quarter: 2014Q1

REPORT INFORMATION
  Report Type: Spontaneous
  Country: BR (occurrence: BR)
  Receive Date: 20140224
  Receipt Date: 20140224
  Transmission Date: 20141002
  Serious: Yes (Hospitalization)
  Sender: FDA-Public Use
  Company Number: BR-AMGEN-BRASP2014012560

PATIENT
  Age: 74 Year
  Sex: Female
  Weight: 76 kg

DRUGS (6)
  1. ENBREL [Suspect]
     Indication: RHEUMATOID ARTHRITIS
     Dosage: 50 MG, ONCE WEEKLY
     Route: 058
  2. LOSARTAN [Concomitant]
     Dosage: 100 MG, UNK
  3. ASS [Concomitant]
     Dosage: 100 MG, UNK
  4. SELOZOK [Concomitant]
     Dosage: UNK
  5. FUROSEMIDE [Concomitant]
     Dosage: 40 MG, UNK
  6. PRADAXA [Concomitant]
     Dosage: 150 MG, UNK

REACTIONS (2)
  - Cardiac disorder [Not Recovered/Not Resolved]
  - Renal disorder [Not Recovered/Not Resolved]
